FAERS Safety Report 20068453 (Version 1)
Quarter: 2021Q4

REPORT INFORMATION
  Report Type: Report from Study
  Country: US (occurrence: US)
  Receive Date: 20211115
  Receipt Date: 20211115
  Transmission Date: 20220303
  Serious: Yes (Other)
  Sender: FDA-Public Use
  Company Number: US-ABBVIE-21K-163-4158512-00

PATIENT
  Sex: Male

DRUGS (1)
  1. HUMIRA [Suspect]
     Active Substance: ADALIMUMAB
     Indication: Crohn^s disease
     Route: 058
     Dates: start: 20211009

REACTIONS (6)
  - Hernia [Unknown]
  - Impaired work ability [Unknown]
  - Fatigue [Unknown]
  - Pruritus [Unknown]
  - Abdominal pain [Unknown]
  - Faeces soft [Unknown]

NARRATIVE: CASE EVENT DATE: 20210101
